FAERS Safety Report 8798414 (Version 2)
Quarter: 2015Q1

REPORT INFORMATION
  Report Type: Report from Study
  Country: US (occurrence: US)
  Receive Date: 20120920
  Receipt Date: 20150324
  Transmission Date: 20150721
  Serious: Yes (Death)
  Sender: FDA-Public Use
  Company Number: US-ROCHE-1125742

PATIENT
  Sex: Female

DRUGS (6)
  1. AVASTIN [Suspect]
     Active Substance: BEVACIZUMAB
     Indication: MALIGNANT NEOPLASM OF UTERINE ADNEXA
     Route: 042
     Dates: start: 20080710
  2. ZOFRAN [Concomitant]
     Active Substance: ONDANSETRON HYDROCHLORIDE
     Route: 042
  3. TAXOL [Concomitant]
     Active Substance: PACLITAXEL
     Route: 042
  4. AVASTIN [Suspect]
     Active Substance: BEVACIZUMAB
     Indication: OVARIAN CANCER
     Route: 042
     Dates: start: 20080222
  5. BENADRYL [Concomitant]
     Active Substance: DIPHENHYDRAMINE HYDROCHLORIDE
     Route: 042
  6. TAGAMET [Concomitant]
     Active Substance: CIMETIDINE
     Route: 042

REACTIONS (2)
  - Death [Fatal]
  - Off label use [Unknown]
